FAERS Safety Report 6579846-X (Version None)
Quarter: 2010Q1

REPORT INFORMATION
  Report Type: 
  Country: None (occurrence: None)
  Receive Date: 20100212
  Receipt Date: 20100120
  Transmission Date: 20100710
  Serious: Yes (Other)
  Sender: FDA-Public Use
  Company Number: US-JNJFOC-20090400598

PATIENT
  Age: 5 Year
  Sex: Male

DRUGS (4)
  1. CHILDREN'S MOTRIN [Suspect]
     Indication: PYREXIA
     Dosage: ^APPROXIMATELY 1 TEASPOON^
     Route: 048
  2. CHILDREN'S MOTRIN [Suspect]
     Indication: NASOPHARYNGITIS
     Dosage: ^APPROXIMATELY 1 TEASPOON^
     Route: 048
  3. CHILDRENS TYLENOL PLUS COLD MULTI SYMPTOM GRAPE [Suspect]
     Indication: PYREXIA
     Route: 048
  4. CHILDRENS TYLENOL PLUS COLD MULTI SYMPTOM GRAPE [Suspect]
     Indication: NASOPHARYNGITIS
     Route: 048

REACTIONS (4)
  - PRODUCT TAMPERING [None]
  - PRODUCT TASTE ABNORMAL [None]
  - VOMITING [None]
  - WRONG DRUG ADMINISTERED [None]
